FAERS Safety Report 5302963-9 (Version None)
Quarter: 2007Q2

REPORT INFORMATION
  Report Type: 
  Country: None (occurrence: None)
  Receive Date: 20070417
  Receipt Date: 20070417
  Transmission Date: 20071010
  Serious: Yes (Death, Hospitalization)
  Sender: FDA-Public Use
  Company Number: None

PATIENT
  Sex: Male
  Weight: 97.6 kg

DRUGS (10)
  1. TEMOZOLOMIDE [Suspect]
     Dosage: 6720 MG
  2. DECADRON [Concomitant]
  3. KEPPRA [Concomitant]
  4. LANTUS [Concomitant]
  5. NOVOLOG [Concomitant]
  6. ZOCOR [Concomitant]
  7. ASPIRIN [Concomitant]
  8. BENAZEPRIL HYDROCHLORIDE [Concomitant]
  9. HYDROCHLOROTHIAZIDE [Concomitant]
  10. PREVAID [Concomitant]

REACTIONS (1)
  - ISCHAEMIC STROKE [None]
